FAERS Safety Report 8478549 (Version 2)
Quarter: 2015Q1

REPORT INFORMATION
  Report Type: Report from Study
  Country: US (occurrence: US)
  Receive Date: 20120327
  Receipt Date: 20150313
  Transmission Date: 20150721
  Serious: Yes (Death)
  Sender: FDA-Public Use
  Company Number: US-ROCHE-1052718

PATIENT
  Sex: Female

DRUGS (24)
  1. ALOXI [Concomitant]
     Active Substance: PALONOSETRON HYDROCHLORIDE
     Route: 042
  2. HEPARIN [Concomitant]
     Active Substance: HEPARIN SODIUM
     Route: 042
  3. AVASTIN [Suspect]
     Active Substance: BEVACIZUMAB
     Indication: RECTAL CANCER
     Route: 042
     Dates: start: 20110215
  4. IRINOTECAN [Concomitant]
     Active Substance: IRINOTECAN
     Route: 042
  5. REGLAN [Concomitant]
     Active Substance: METOCLOPRAMIDE HYDROCHLORIDE
     Route: 042
  6. ZOFRAN [Concomitant]
     Active Substance: ONDANSETRON HYDROCHLORIDE
     Route: 042
  7. AVASTIN [Suspect]
     Active Substance: BEVACIZUMAB
     Indication: COLON CANCER
     Route: 042
     Dates: start: 20110120
  8. 5-FU [Concomitant]
     Active Substance: FLUOROURACIL
     Route: 042
  9. DEXAMETHASONE. [Concomitant]
     Active Substance: DEXAMETHASONE
     Route: 042
  10. AVASTIN [Suspect]
     Active Substance: BEVACIZUMAB
     Route: 042
     Dates: start: 20110315
  11. BENADRYL [Concomitant]
     Active Substance: DIPHENHYDRAMINE HYDROCHLORIDE
     Route: 042
  12. POTASSIUM CHLORIDE. [Concomitant]
     Active Substance: POTASSIUM CHLORIDE
     Route: 065
  13. AVASTIN [Suspect]
     Active Substance: BEVACIZUMAB
     Route: 042
     Dates: start: 20110621
  14. NEULASTA [Concomitant]
     Active Substance: PEGFILGRASTIM
     Route: 058
  15. NEULASTA [Concomitant]
     Active Substance: PEGFILGRASTIM
     Route: 058
  16. PROCRIT [Concomitant]
     Active Substance: ERYTHROPOIETIN
     Route: 058
  17. AVASTIN [Suspect]
     Active Substance: BEVACIZUMAB
     Route: 042
     Dates: start: 20110510
  18. ATROPINE [Concomitant]
     Active Substance: ATROPINE
     Route: 042
  19. EMEND [Concomitant]
     Active Substance: APREPITANT
     Route: 065
  20. TYLENOL [Concomitant]
     Active Substance: ACETAMINOPHEN
     Route: 048
  21. LEUCOVORIN [Concomitant]
     Active Substance: LEUCOVORIN
     Route: 042
  22. ZOFRAN [Concomitant]
     Active Substance: ONDANSETRON HYDROCHLORIDE
     Route: 042
  23. COMPAZINE [Concomitant]
     Active Substance: PROCHLORPERAZINE MALEATE
     Route: 042
  24. ZOMETA [Concomitant]
     Active Substance: ZOLEDRONIC ACID
     Route: 042

REACTIONS (1)
  - Death [Fatal]
